FAERS Safety Report 8637764 (Version 4)
Quarter: 2012Q4

REPORT INFORMATION
  Report Type: 
  Country: JP (occurrence: JP)
  Receive Date: 20120627
  Receipt Date: 20121130
  Transmission Date: 20130627
  Serious: Yes (Death, Other)
  Sender: FDA-Public Use
  Company Number: JP-PFIZER INC-2012152156

PATIENT
  Age: 63 Year
  Sex: Male

DRUGS (10)
  1. ZOSYN [Suspect]
     Indication: FEBRILE NEUTROPENIA
     Dosage: 4.5 g, 3x/day
     Route: 041
  2. ZOSYN [Suspect]
     Dosage: 4.5 g, 3x/day
     Route: 041
  3. MEROPENEM [Suspect]
     Indication: FEBRILE NEUTROPENIA
     Dosage: 3 g, 1x/day
     Route: 041
  4. FLUCONAZOLE [Concomitant]
     Indication: ANTIFUNGAL PROPHYLAXIS
     Dosage: 100 mg, 1x/day
     Route: 048
  5. CYLOCIDE [Concomitant]
     Indication: ACUTE MYELOBLASTIC LEUKAEMIA
     Dosage: UNK
     Route: 041
  6. DAUNOMYCIN [Concomitant]
     Indication: ACUTE MYELOBLASTIC LEUKAEMIA
     Dosage: UNK
     Route: 041
  7. NOVANTRON [Concomitant]
     Indication: ACUTE MYELOBLASTIC LEUKAEMIA
     Dosage: UNK
     Route: 041
  8. ETOPOSIDE [Concomitant]
     Indication: ACUTE MYELOBLASTIC LEUKAEMIA
     Dosage: UNK
     Route: 041
  9. VFEND [Concomitant]
     Indication: ANTIFUNGAL PROPHYLAXIS
     Dosage: 300-600 mg/day
     Route: 048
  10. TEICOPLANIN [Concomitant]
     Dosage: 5-20?g/mL
     Route: 041

REACTIONS (2)
  - Pneumonia pseudomonas aeruginosa [Fatal]
  - Pulmonary haemorrhage [None]
